FAERS Safety Report 12204258 (Version 1)
Quarter: 2016Q1

REPORT INFORMATION
  Report Type: Spontaneous
  Country: US (occurrence: None)
  Receive Date: 20160322
  Receipt Date: 20160322
  Transmission Date: 20160526
  Serious: Yes (Hospitalization)
  Sender: FDA-Public Use
  Company Number: None

PATIENT
  Age: 64 Year
  Sex: Male

DRUGS (1)
  1. LISINOPRIL 10MG [Suspect]
     Active Substance: LISINOPRIL
     Route: 048

REACTIONS (3)
  - Hyperkalaemia [None]
  - Acute myocardial infarction [None]
  - Cardiogenic shock [None]

NARRATIVE: CASE EVENT DATE: 20150404
